FAERS Safety Report 24262785 (Version 1)
Quarter: 2024Q3

REPORT INFORMATION
  Report Type: Spontaneous
  Country: US (occurrence: US)
  Receive Date: 20240829
  Receipt Date: 20240829
  Transmission Date: 20241016
  Serious: Yes (Hospitalization)
  Sender: IMMUNOGEN
  Company Number: US-IMMUNOGEN, INC.-US-IMGN-24-00551

PATIENT
  Sex: Female

DRUGS (2)
  1. ELAHERE [Suspect]
     Active Substance: MIRVETUXIMAB SORAVTANSINE-GYNX
     Indication: Ovarian cancer
     Dosage: 6 MILLIGRAM, 3RD ROUND
     Route: 042
  2. AVASTIN [Concomitant]
     Active Substance: BEVACIZUMAB
     Indication: Product used for unknown indication
     Dosage: UNK, UNK
     Route: 065

REACTIONS (1)
  - Diarrhoea [Unknown]
